FAERS Safety Report 7302821-4 (Version None)
Quarter: 2011Q1

REPORT INFORMATION
  Report Type: 
  Country: None (occurrence: None)
  Receive Date: 20110218
  Receipt Date: 20110207
  Transmission Date: 20110831
  Serious: Yes (Life-Threatening)
  Sender: FDA-Public Use
  Company Number: PL-CELGENEUS-129-C5013-10113167

PATIENT
  Sex: Male
  Weight: 103 kg

DRUGS (7)
  1. PREDNISONE [Suspect]
     Indication: PROSTATE CANCER
     Route: 048
     Dates: start: 20101019
  2. CC-5013\PLACEBO [Suspect]
     Indication: PROSTATE CANCER
     Route: 048
     Dates: start: 20101019
  3. DOCETAXEL [Suspect]
     Indication: PROSTATE CANCER
     Route: 051
     Dates: start: 20101019
  4. CC-5013\PLACEBO [Suspect]
     Route: 048
     Dates: start: 20101109, end: 20101122
  5. DOCETAXEL [Suspect]
     Route: 051
     Dates: start: 20101109, end: 20101109
  6. PREDNISONE [Suspect]
     Route: 048
     Dates: start: 20101109, end: 20101130
  7. TERTENSIF [Concomitant]
     Route: 065
     Dates: start: 20050101

REACTIONS (5)
  - ILIAC ARTERY OCCLUSION [None]
  - PLATELET COUNT DECREASED [None]
  - RED BLOOD CELL COUNT DECREASED [None]
  - PERIPHERAL ISCHAEMIA [None]
  - HAEMOGLOBIN DECREASED [None]
